FAERS Safety Report 4682444-6 (Version None)
Quarter: 2005Q2

REPORT INFORMATION
  Report Type: 
  Country: None (occurrence: None)
  Receive Date: 20050531
  Receipt Date: 20050228
  Transmission Date: 20051028
  Serious: No
  Sender: FDA-Public Use
  Company Number: 2005BI004631

PATIENT
  Age: 59 Year
  Sex: Male

DRUGS (7)
  1. AMEVIVE [Suspect]
     Indication: PSORIASIS
     Dosage: 15 MG; QW; IM  15 MG; QW; IM
     Route: 030
     Dates: start: 20040115, end: 20040226
  2. AMEVIVE [Suspect]
     Indication: PSORIASIS
     Dosage: 15 MG; QW; IM  15 MG; QW; IM
     Route: 030
     Dates: start: 20040803, end: 20041221
  3. GLIPIZIDE [Concomitant]
  4. TRIAMCINOLONE [Concomitant]
  5. DIOVAN [Concomitant]
  6. METFORMIN [Concomitant]
  7. GEMFIBROZIL [Concomitant]

REACTIONS (1)
  - NEPHROLITHIASIS [None]
